FAERS Safety Report 21297997 (Version 1)
Quarter: 2022Q3

REPORT INFORMATION
  Report Type: Spontaneous
  Country: US (occurrence: None)
  Receive Date: 20220902
  Receipt Date: 20220902
  Transmission Date: 20221027
  Serious: Yes (Hospitalization)
  Sender: FDA-Public Use
  Company Number: None

PATIENT
  Age: 75 Year
  Sex: Male
  Weight: 98.88 kg

DRUGS (1)
  1. OBINUTUZUMAB [Suspect]
     Active Substance: OBINUTUZUMAB
     Indication: Lymphocytic leukaemia
     Dosage: 900 MG OTHER  IV
     Route: 042
     Dates: start: 20220201, end: 20220315

REACTIONS (5)
  - Infusion related reaction [None]
  - Wheezing [None]
  - Respiratory failure [None]
  - Chronic lymphocytic leukaemia [None]
  - Cough [None]

NARRATIVE: CASE EVENT DATE: 20220315
